FAERS Safety Report 7432655-1 (Version None)
Quarter: 2011Q2

REPORT INFORMATION
  Report Type: 
  Country: None (occurrence: None)
  Receive Date: 20110422
  Receipt Date: 20110418
  Transmission Date: 20111010
  Serious: Yes (Hospitalization, Other)
  Sender: FDA-Public Use
  Company Number: US-ROCHE-741664

PATIENT
  Sex: Male
  Weight: 49.9 kg

DRUGS (1)
  1. ACCUTANE [Suspect]
     Route: 065
     Dates: start: 19910601, end: 19910901

REACTIONS (6)
  - CROHN'S DISEASE [None]
  - OSTEOPOROSIS [None]
  - INFLAMMATORY BOWEL DISEASE [None]
  - ABSCESS INTESTINAL [None]
  - FISTULA [None]
  - DEPRESSED MOOD [None]
